FAERS Safety Report 6674905-5 (Version None)
Quarter: 2010Q2

REPORT INFORMATION
  Report Type: 
  Country: None (occurrence: None)
  Receive Date: 20100409
  Receipt Date: 20090406
  Transmission Date: 20101027
  Serious: Yes (Hospitalization)
  Sender: FDA-Public Use
  Company Number: JP-PFIZER INC-2009195610

PATIENT
  Age: 62 Year
  Sex: Male
  Weight: 68.6 kg

DRUGS (7)
  1. OXALIPLATIN [Suspect]
     Indication: COLORECTAL CANCER METASTATIC
     Dosage: 153 MG, DAILY EVERY 2 WEEKS
     Route: 042
     Dates: start: 20090312
  2. SUNITINIB MALATE [Suspect]
     Indication: COLORECTAL CANCER METASTATIC
     Dosage: 37.5 MG, 1X/DAY
     Route: 048
     Dates: start: 20090312
  3. FLUOROURACIL [Suspect]
     Indication: COLORECTAL CANCER METASTATIC
     Dosage: 721 MG, DAILY EVERY 2 WEEKS
     Route: 040
     Dates: start: 20090312
  4. FLUOROURACIL [Suspect]
     Dosage: 4329 MG, DAILY EVERY 2 WEEKS
     Route: 042
     Dates: start: 20090312
  5. *FOLINIC ACID [Suspect]
     Indication: COLORECTAL CANCER METASTATIC
     Dosage: 360 MG, DAILY EVERY 2 WEEKS
     Route: 042
     Dates: start: 20090312
  6. AMLODIPINE BESILATE [Concomitant]
     Dosage: UNK
     Route: 048
  7. BETAMETASONE VALERATE/GENTAMICIN SULFATE [Concomitant]
     Dosage: UNK
     Route: 062
     Dates: start: 20090402, end: 20090406

REACTIONS (1)
  - HERPES VIRUS INFECTION [None]
